FAERS Safety Report 6303006-0 (Version None)
Quarter: 2009Q3

REPORT INFORMATION
  Report Type: 
  Country: None (occurrence: None)
  Receive Date: 20090810
  Receipt Date: 20090805
  Transmission Date: 20100115
  Serious: No
  Sender: FDA-Public Use
  Company Number: AU-ASTRAZENECA-2009SE02880

PATIENT
  Age: 37 Year
  Sex: Female

DRUGS (3)
  1. ROPIVACAINE HYDROCHLORIDE [Suspect]
     Indication: PROCEDURAL PAIN
     Dosage: TWO TAP BLOCKS AT 2X8 ML/HR
     Route: 042
     Dates: start: 20090616, end: 20090618
  2. ROPIVACAINE HYDROCHLORIDE [Suspect]
     Dosage: ONE PARA-VERTEBRAL BLOCK AT 4 ML/HR
     Route: 042
     Dates: start: 20090616, end: 20090618
  3. OXYCODONE [Concomitant]
     Indication: ANALGESIA

REACTIONS (3)
  - DRUG TOXICITY [None]
  - OVERDOSE [None]
  - PARAESTHESIA [None]
